FAERS Safety Report 9465437 (Version 2)
Quarter: 2013Q3

REPORT INFORMATION
  Report Type: Spontaneous
  Country: DE (occurrence: DE)
  Receive Date: 20130820
  Receipt Date: 20130903
  Transmission Date: 20140515
  Serious: Yes (Hospitalization, Other)
  Sender: FDA-Public Use
  Company Number: DE-ROCHE-1262954

PATIENT
  Age: 74 Year
  Sex: Female

DRUGS (10)
  1. MABTHERA [Suspect]
     Indication: RHEUMATOID ARTHRITIS
     Route: 042
     Dates: start: 20130417
  2. MABTHERA [Suspect]
     Route: 042
     Dates: start: 20130502
  3. MABTHERA [Suspect]
     Route: 065
     Dates: start: 20130529
  4. RIVAROXABAN [Concomitant]
     Route: 065
  5. URBASON (GERMANY) [Concomitant]
     Route: 065
  6. BISOPROLOL [Concomitant]
     Indication: HYPOTENSION
     Route: 065
  7. CANDESARTAN CILEXETIL/HYDROCHLOROTHIAZIDE [Concomitant]
     Dosage: 16MG/12.5MG, FREQUENCY REPORTED AS 1/2-0-0.
     Route: 065
  8. L-THYROXIN [Concomitant]
     Route: 065
  9. PARACETAMOL [Concomitant]
     Route: 065
  10. CHOLECALCIFEROL [Concomitant]

REACTIONS (7)
  - Agranulocytosis [Recovered/Resolved]
  - Leukopenia [Recovered/Resolved]
  - White blood cell disorder [Recovered/Resolved]
  - Fall [Unknown]
  - Hypotension [Not Recovered/Not Resolved]
  - Pelvic fracture [Unknown]
  - Haematoma [Unknown]
